FAERS Safety Report 10587236 (Version 2)
Quarter: 2014Q4

REPORT INFORMATION
  Report Type: Report from Study
  Country: JP (occurrence: JP)
  Receive Date: 20141117
  Receipt Date: 20141117
  Transmission Date: 20150529
  Serious: Yes (Death, Hospitalization)
  Sender: FDA-Public Use
  Company Number: JP-ASTELLAS-2011JP000700AA

PATIENT
  Age: 42 Year
  Sex: Female
  Weight: 61 kg

DRUGS (77)
  1. PREDONINE [Concomitant]
     Active Substance: PREDNISOLONE\PREDNISOLONE ACETATE\PREDNISOLONE SODIUM SUCCINATE
     Route: 048
     Dates: start: 20120819, end: 20120905
  2. PREDONINE [Concomitant]
     Active Substance: PREDNISOLONE\PREDNISOLONE ACETATE\PREDNISOLONE SODIUM SUCCINATE
     Dates: start: 20121204, end: 20121213
  3. ZYLORIC [Concomitant]
     Active Substance: ALLOPURINOL
     Indication: HYPERURICAEMIA
     Route: 048
     Dates: end: 20100113
  4. ZYLORIC [Concomitant]
     Active Substance: ALLOPURINOL
     Dosage: UNK UNK, UNKNOWN FREQ.
     Route: 048
     Dates: start: 20110901
  5. ZYLORIC [Concomitant]
     Active Substance: ALLOPURINOL
     Route: 048
     Dates: start: 20110908, end: 20120208
  6. CINALONG [Concomitant]
     Indication: PROPHYLAXIS
     Route: 048
     Dates: start: 20091210, end: 20100706
  7. DIART [Concomitant]
     Active Substance: AZOSEMIDE
     Indication: LUPUS NEPHRITIS
     Route: 048
     Dates: start: 20120824, end: 20121122
  8. CEFEPIME [Concomitant]
     Active Substance: CEFEPIME\CEFEPIME HYDROCHLORIDE
     Indication: PYREXIA
     Route: 065
     Dates: start: 20120807, end: 20120809
  9. UROMITEXAN [Concomitant]
     Active Substance: MESNA
     Route: 065
     Dates: start: 20121220, end: 20121220
  10. TACROLIMUS. [Suspect]
     Active Substance: TACROLIMUS
     Route: 048
     Dates: start: 20100407, end: 20121205
  11. LASIX [Suspect]
     Active Substance: FUROSEMIDE
     Dosage: UNK, UNKNOWN FREQ.
     Route: 048
  12. PREDONINE [Concomitant]
     Active Substance: PREDNISOLONE\PREDNISOLONE ACETATE\PREDNISOLONE SODIUM SUCCINATE
     Route: 048
     Dates: start: 20100609, end: 20101005
  13. PREDONINE [Concomitant]
     Active Substance: PREDNISOLONE\PREDNISOLONE ACETATE\PREDNISOLONE SODIUM SUCCINATE
     Route: 048
     Dates: start: 20121018, end: 20121107
  14. ALFAROL [Concomitant]
     Active Substance: ALFACALCIDOL
     Indication: PROPHYLAXIS
     Dosage: 0.5 ?G, ONCE DAILY
     Route: 048
     Dates: end: 20120411
  15. ENDOXAN                            /00021101/ [Concomitant]
     Active Substance: CYCLOPHOSPHAMIDE
     Indication: SYSTEMIC LUPUS ERYTHEMATOSUS
     Route: 065
     Dates: start: 20120927, end: 20120927
  16. FUNGIZONE [Concomitant]
     Active Substance: AMPHOTERICIN B
     Indication: PROPHYLAXIS
     Route: 048
     Dates: start: 20120816, end: 20120823
  17. MEROPEN                            /01250501/ [Concomitant]
     Active Substance: MEROPENEM
     Route: 065
     Dates: start: 20121221, end: 20121230
  18. DENOSINE                           /00090105/ [Concomitant]
     Indication: CYTOMEGALOVIRUS VIRAEMIA
     Route: 065
     Dates: start: 20120919, end: 20120927
  19. FIRSTCIN [Concomitant]
     Active Substance: CEFOZOPRAN HYDROCHLORIDE
     Indication: PRODUCT USED FOR UNKNOWN INDICATION
     Route: 065
     Dates: start: 20121007, end: 20121015
  20. MINOPEN [Concomitant]
     Active Substance: MINOCYCLINE HYDROCHLORIDE
     Indication: PNEUMONIA
     Route: 065
     Dates: start: 20121122, end: 20121130
  21. TACROLIMUS. [Suspect]
     Active Substance: TACROLIMUS
     Route: 048
     Dates: start: 20100210, end: 20100406
  22. LASIX [Suspect]
     Active Substance: FUROSEMIDE
     Indication: PRODUCT USED FOR UNKNOWN INDICATION
     Route: 065
     Dates: start: 20121109, end: 20121113
  23. PREDNISOLONE. [Concomitant]
     Active Substance: PREDNISOLONE
     Route: 048
     Dates: start: 20090520, end: 20090811
  24. PREDONINE [Concomitant]
     Active Substance: PREDNISOLONE\PREDNISOLONE ACETATE\PREDNISOLONE SODIUM SUCCINATE
     Indication: LUPUS NEPHRITIS
     Route: 048
     Dates: start: 20091015, end: 20091209
  25. PREDONINE [Concomitant]
     Active Substance: PREDNISOLONE\PREDNISOLONE ACETATE\PREDNISOLONE SODIUM SUCCINATE
     Route: 048
     Dates: start: 20110714, end: 20120806
  26. PREDONINE [Concomitant]
     Active Substance: PREDNISOLONE\PREDNISOLONE ACETATE\PREDNISOLONE SODIUM SUCCINATE
     Indication: LUPUS NEPHRITIS
     Route: 065
     Dates: start: 20120807, end: 20120818
  27. PREDONINE [Concomitant]
     Active Substance: PREDNISOLONE\PREDNISOLONE ACETATE\PREDNISOLONE SODIUM SUCCINATE
     Route: 065
     Dates: start: 20121127, end: 20121203
  28. SOLU-MEDROL [Concomitant]
     Active Substance: METHYLPREDNISOLONE SODIUM SUCCINATE
     Indication: LUPUS NEPHRITIS
     Route: 065
     Dates: start: 20120810, end: 20120812
  29. ENDOXAN                            /00021101/ [Concomitant]
     Active Substance: CYCLOPHOSPHAMIDE
     Indication: SYSTEMIC LUPUS ERYTHEMATOSUS
     Route: 065
     Dates: start: 20120823, end: 20120823
  30. UROMITEXAN [Concomitant]
     Active Substance: MESNA
     Indication: PROPHYLAXIS
     Route: 065
     Dates: start: 20120927, end: 20120927
  31. LASIX [Suspect]
     Active Substance: FUROSEMIDE
     Indication: LUPUS NEPHRITIS
     Route: 048
     Dates: end: 20100113
  32. LASIX [Suspect]
     Active Substance: FUROSEMIDE
     Route: 048
     Dates: start: 20100114
  33. PREDONINE [Concomitant]
     Active Substance: PREDNISOLONE\PREDNISOLONE ACETATE\PREDNISOLONE SODIUM SUCCINATE
     Route: 048
     Dates: start: 20110512, end: 20110713
  34. PREDONINE [Concomitant]
     Active Substance: PREDNISOLONE\PREDNISOLONE ACETATE\PREDNISOLONE SODIUM SUCCINATE
     Route: 048
     Dates: start: 20121214, end: 20121231
  35. DIOVAN [Concomitant]
     Active Substance: VALSARTAN
     Indication: PRODUCT USED FOR UNKNOWN INDICATION
     Route: 048
     Dates: end: 20121121
  36. ALFAROL [Concomitant]
     Active Substance: ALFACALCIDOL
     Dosage: 0.25 ?G, ONCE DAILY
     Route: 048
     Dates: start: 20120412, end: 20120806
  37. TANKARU [Concomitant]
     Indication: PRODUCT USED FOR UNKNOWN INDICATION
     Dosage: UNK UNK, UNKNOWN FREQ.
     Route: 048
     Dates: end: 20100113
  38. LIVALO [Concomitant]
     Active Substance: PITAVASTATIN CALCIUM
     Indication: PRODUCT USED FOR UNKNOWN INDICATION
     Route: 048
     Dates: end: 20120806
  39. ARTIST [Concomitant]
     Active Substance: CARVEDILOL
     Indication: BLOOD PRESSURE MANAGEMENT
     Route: 048
     Dates: start: 20120821, end: 20121219
  40. RISPERDAL [Concomitant]
     Active Substance: RISPERIDONE
     Indication: EPILEPSY
     Route: 048
     Dates: start: 20120814, end: 20120829
  41. PREDONINE [Concomitant]
     Active Substance: PREDNISOLONE\PREDNISOLONE ACETATE\PREDNISOLONE SODIUM SUCCINATE
     Route: 048
     Dates: start: 20101006, end: 20110111
  42. PREDONINE [Concomitant]
     Active Substance: PREDNISOLONE\PREDNISOLONE ACETATE\PREDNISOLONE SODIUM SUCCINATE
     Route: 048
     Dates: start: 20120906, end: 20121017
  43. PREDONINE [Concomitant]
     Active Substance: PREDNISOLONE\PREDNISOLONE ACETATE\PREDNISOLONE SODIUM SUCCINATE
     Route: 048
     Dates: start: 20121108, end: 20121121
  44. ADALAT [Concomitant]
     Active Substance: NIFEDIPINE
     Indication: PRODUCT USED FOR UNKNOWN INDICATION
     Route: 048
     Dates: start: 20120823, end: 20121121
  45. VANCOMYCIN [Concomitant]
     Active Substance: VANCOMYCIN
     Indication: PROPHYLAXIS
     Dosage: 0.5 G, ONCE DAILY
     Route: 048
     Dates: start: 20120827, end: 20121003
  46. DALACIN ST [Concomitant]
     Indication: PYREXIA
     Route: 065
     Dates: start: 20120807, end: 20120810
  47. DALACIN ST [Concomitant]
     Indication: DIARRHOEA
  48. ZOSYN [Concomitant]
     Active Substance: PIPERACILLIN SODIUM\TAZOBACTAM SODIUM
     Indication: DIARRHOEA
  49. LASIX [Suspect]
     Active Substance: FUROSEMIDE
     Route: 048
     Dates: start: 20120412, end: 20120806
  50. PREDONINE [Concomitant]
     Active Substance: PREDNISOLONE\PREDNISOLONE ACETATE\PREDNISOLONE SODIUM SUCCINATE
     Route: 048
     Dates: start: 20121122, end: 20121126
  51. TANKARU [Concomitant]
     Dosage: UNK UNK, UNKNOWN FREQ.
     Route: 048
     Dates: start: 20100114, end: 20101005
  52. ATELEC [Concomitant]
     Active Substance: CILNIDIPINE
     Indication: PRODUCT USED FOR UNKNOWN INDICATION
     Route: 048
     Dates: start: 20100707, end: 20120822
  53. TEGRETOL [Concomitant]
     Active Substance: CARBAMAZEPINE
     Indication: EPILEPSY
     Route: 048
     Dates: start: 20120814, end: 20121205
  54. VANCOMYCIN [Concomitant]
     Active Substance: VANCOMYCIN
     Indication: PYREXIA
     Route: 065
     Dates: start: 20120808, end: 20120811
  55. VANCOMYCIN [Concomitant]
     Active Substance: VANCOMYCIN
     Indication: DIARRHOEA
  56. MYSLEE [Concomitant]
     Active Substance: ZOLPIDEM TARTRATE
     Indication: PRODUCT USED FOR UNKNOWN INDICATION
     Route: 048
     Dates: start: 20120824, end: 20121230
  57. MEROPEN                            /01250501/ [Concomitant]
     Active Substance: MEROPENEM
     Indication: CELLULITIS
     Route: 065
     Dates: start: 20120904, end: 20120906
  58. MEROPEN                            /01250501/ [Concomitant]
     Active Substance: MEROPENEM
     Indication: PNEUMONIA
     Route: 065
     Dates: start: 20121122, end: 20121219
  59. CEFAMEZIN ALPHA [Concomitant]
     Active Substance: CEFAZOLIN SODIUM
     Indication: CELLULITIS
     Route: 065
     Dates: start: 20120906, end: 20120914
  60. CEFAMEZIN ALPHA [Concomitant]
     Active Substance: CEFAZOLIN SODIUM
     Route: 065
     Dates: start: 20120919, end: 20120925
  61. NESP [Concomitant]
     Active Substance: DARBEPOETIN ALFA
     Indication: NEPHROGENIC ANAEMIA
     Route: 065
     Dates: start: 20120920, end: 20121016
  62. LASIX [Suspect]
     Active Substance: FUROSEMIDE
     Route: 048
     Dates: end: 20120411
  63. PREDNISOLONE. [Concomitant]
     Active Substance: PREDNISOLONE
     Indication: LUPUS NEPHRITIS
     Route: 048
     Dates: end: 20090519
  64. PREDNISOLONE. [Concomitant]
     Active Substance: PREDNISOLONE
     Route: 048
     Dates: start: 20090812, end: 20091014
  65. PREDONINE [Concomitant]
     Active Substance: PREDNISOLONE\PREDNISOLONE ACETATE\PREDNISOLONE SODIUM SUCCINATE
     Route: 048
     Dates: start: 20110112, end: 20110511
  66. TAKEPRON [Concomitant]
     Active Substance: LANSOPRAZOLE
     Route: 048
     Dates: start: 20120808, end: 20121231
  67. FEBURIC [Concomitant]
     Active Substance: FEBUXOSTAT
     Indication: PRODUCT USED FOR UNKNOWN INDICATION
     Route: 048
     Dates: start: 20120412, end: 20120806
  68. RISPERDAL [Concomitant]
     Active Substance: RISPERIDONE
     Route: 048
     Dates: start: 20121202, end: 20121212
  69. BAKTAR [Concomitant]
     Active Substance: SULFAMETHOXAZOLE\TRIMETHOPRIM
     Indication: PROPHYLAXIS
     Route: 048
     Dates: start: 20120830, end: 20121231
  70. NESP [Concomitant]
     Active Substance: DARBEPOETIN ALFA
     Dosage: 60 UNK, UNKNOWN FREQ.
     Route: 065
     Dates: start: 20121112, end: 20121225
  71. TACROLIMUS. [Suspect]
     Active Substance: TACROLIMUS
     Indication: LUPUS NEPHRITIS
     Route: 048
     Dates: start: 20090318, end: 20100209
  72. PREDONINE [Concomitant]
     Active Substance: PREDNISOLONE\PREDNISOLONE ACETATE\PREDNISOLONE SODIUM SUCCINATE
     Route: 048
     Dates: start: 20091210, end: 20100608
  73. TAKEPRON [Concomitant]
     Active Substance: LANSOPRAZOLE
     Indication: PROPHYLAXIS
     Route: 048
     Dates: end: 20120208
  74. SELBEX [Concomitant]
     Active Substance: TEPRENONE
     Indication: PROPHYLAXIS
     Route: 048
     Dates: start: 20110908
  75. ENDOXAN                            /00021101/ [Concomitant]
     Active Substance: CYCLOPHOSPHAMIDE
     Route: 065
     Dates: start: 20121204, end: 20121204
  76. CEFEPIME [Concomitant]
     Active Substance: CEFEPIME\CEFEPIME HYDROCHLORIDE
     Indication: DIARRHOEA
  77. ZOSYN [Concomitant]
     Active Substance: PIPERACILLIN SODIUM\TAZOBACTAM SODIUM
     Indication: PYREXIA
     Route: 065
     Dates: start: 20120810, end: 20120831

REACTIONS (11)
  - Systemic lupus erythematosus [Recovering/Resolving]
  - Hyperuricaemia [Recovered/Resolved]
  - Pneumonia [Fatal]
  - Hyperuricaemia [Recovered/Resolved]
  - Nasopharyngitis [Recovered/Resolved]
  - White blood cell count increased [Recovered/Resolved]
  - Peritonitis [Recovering/Resolving]
  - Epilepsy [Recovering/Resolving]
  - Cytomegalovirus viraemia [Recovering/Resolving]
  - Cellulitis [Recovered/Resolved]
  - Renal impairment [Recovered/Resolved]

NARRATIVE: CASE EVENT DATE: 20090506
